FAERS Safety Report 18010788 (Version 1)
Quarter: 2020Q3

REPORT INFORMATION
  Report Type: Spontaneous
  Country: AU (occurrence: AU)
  Receive Date: 20200710
  Receipt Date: 20200710
  Transmission Date: 20201103
  Serious: Yes (Other)
  Sender: FDA-Public Use
  Company Number: AU-ANIPHARMA-2020-AU-000130

PATIENT
  Age: 35 Year
  Sex: Female

DRUGS (8)
  1. CARBOPLATIN. [Concomitant]
     Active Substance: CARBOPLATIN
     Route: 065
     Dates: start: 2018, end: 2020
  2. XELODA [Suspect]
     Active Substance: CAPECITABINE
     Route: 065
  3. ANTHRACYCLINES /OLD CODE [Concomitant]
     Route: 065
  4. GEMCITABINE. [Concomitant]
     Active Substance: GEMCITABINE
     Route: 065
     Dates: start: 2018, end: 2020
  5. TAMOXIFEN [Suspect]
     Active Substance: TAMOXIFEN
     Route: 048
  6. ARIMIDEX [Suspect]
     Active Substance: ANASTROZOLE
     Indication: BREAST CANCER
     Route: 048
  7. TAXANES NOS [Concomitant]
     Route: 065
  8. ABRAXANE [Concomitant]
     Active Substance: PACLITAXEL
     Route: 065

REACTIONS (5)
  - Malignant neoplasm progression [Unknown]
  - Bone marrow failure [Unknown]
  - BRCA2 gene mutation [Unknown]
  - Metastatic neoplasm [Unknown]
  - Breast cancer recurrent [Unknown]

NARRATIVE: CASE EVENT DATE: 2017
